FAERS Safety Report 23652031 (Version 1)
Quarter: 2024Q1

REPORT INFORMATION
  Report Type: Spontaneous
  Country: US (occurrence: US)
  Receive Date: 20240320
  Receipt Date: 20240320
  Transmission Date: 20240409
  Serious: No
  Sender: FDA-Public Use
  Company Number: US-MYLANLABS-2024M1022571

PATIENT
  Age: 25 Year
  Sex: Female

DRUGS (1)
  1. EMSAM [Suspect]
     Active Substance: SELEGILINE
     Indication: Depression
     Dosage: 12 MILLIGRAM, QD
     Route: 062
     Dates: start: 20230131

REACTIONS (2)
  - Intercepted product dispensing error [Unknown]
  - Product label issue [Unknown]

NARRATIVE: CASE EVENT DATE: 20240306
